FAERS Safety Report 19089441 (Version 1)
Quarter: 2021Q2

REPORT INFORMATION
  Report Type: Spontaneous
  Country: IT (occurrence: IT)
  Receive Date: 20210403
  Receipt Date: 20210403
  Transmission Date: 20210717
  Serious: Yes (Other)
  Sender: FDA-Public Use
  Company Number: IT-ACCORD-221609

PATIENT
  Age: 58 Year
  Sex: Male
  Weight: 84 kg

DRUGS (1)
  1. MYCOPHENOLATE MOFETIL/MYCOPHENOLATE SODIUM/MYCOPHENOLIC ACID [Suspect]
     Active Substance: MYCOPHENOLIC ACID
     Indication: TRANSPLANT
     Route: 048
     Dates: start: 20210125, end: 20210211

REACTIONS (1)
  - Dysentery [Recovering/Resolving]

NARRATIVE: CASE EVENT DATE: 20210125
